FAERS Safety Report 15259640 (Version 1)
Quarter: 2018Q3

REPORT INFORMATION
  Report Type: Spontaneous
  Country: US (occurrence: US)
  Receive Date: 20180719
  Receipt Date: 20180719
  Transmission Date: 20181010
  Serious: Yes (Hospitalization, Other)
  Sender: FDA-Public Use
  Company Number: None

PATIENT
  Age: 26 Year
  Sex: Female
  Weight: 54 kg

DRUGS (7)
  1. PROPRANOLOL 40MG [Concomitant]
  2. ALPRAZOLAM 0.25 [Concomitant]
     Active Substance: ALPRAZOLAM
  3. METHIMAZOLE. [Suspect]
     Active Substance: METHIMAZOLE
     Indication: HYPERTHYROIDISM
     Route: 048
     Dates: start: 20180710, end: 20180718
  4. ONDANSETRON. [Concomitant]
     Active Substance: ONDANSETRON
  5. VENTOLIN [Concomitant]
     Active Substance: ALBUTEROL SULFATE
  6. BUPROPION 75MG [Concomitant]
  7. BLISOVI FE 21 1?20 [Concomitant]

REACTIONS (1)
  - Paralysis [None]

NARRATIVE: CASE EVENT DATE: 20180718
